FAERS Safety Report 9887850 (Version 2)
Quarter: 2014Q2

REPORT INFORMATION
  Report Type: Report from Study
  Country: US (occurrence: US)
  Receive Date: 20140211
  Receipt Date: 20140522
  Transmission Date: 20141212
  Serious: Yes (Hospitalization, Other)
  Sender: FDA-Public Use
  Company Number: US-ALEXION-A201304931

PATIENT
  Sex: 0

DRUGS (3)
  1. SOLIRIS [Suspect]
     Indication: HAEMOLYTIC URAEMIC SYNDROME
     Dosage: UNK
     Route: 042
  2. SOLIRIS [Suspect]
     Dosage: 600 MG, Q2W
     Route: 042
     Dates: start: 20130830
  3. SOLIRIS [Suspect]
     Dosage: 600 MG, QW
     Route: 042

REACTIONS (5)
  - Histiocytosis haematophagic [Unknown]
  - Bone marrow transplant [Unknown]
  - Chimerism [Unknown]
  - Platelet count decreased [Unknown]
  - Asthenia [Unknown]
